FAERS Safety Report 5991845-5 (Version None)
Quarter: 2008Q4

REPORT INFORMATION
  Report Type: 
  Country: None (occurrence: None)
  Receive Date: 20081211
  Receipt Date: 20081125
  Transmission Date: 20090506
  Serious: No
  Sender: FDA-Public Use
  Company Number: US-B.I. PHARMACEUTICALS,INC./RIDGEFIELD-2008-BP-17794BP

PATIENT
  Sex: Female

DRUGS (1)
  1. CATAPRES [Suspect]
     Indication: HYPERTENSION
     Dosage: 1.8- 2.4MG DAILY
     Route: 048
     Dates: start: 20070101, end: 20081015

REACTIONS (8)
  - BURNING SENSATION [None]
  - DEPRESSION [None]
  - HALLUCINATION, VISUAL [None]
  - HOT FLUSH [None]
  - HYPOACUSIS [None]
  - PANIC ATTACK [None]
  - PHOTOPSIA [None]
  - VISUAL ACUITY REDUCED [None]
